FAERS Safety Report 19856132 (Version 2)
Quarter: 2021Q3

REPORT INFORMATION
  Report Type: Report from Study
  Country: AR (occurrence: AR)
  Receive Date: 20210920
  Receipt Date: 20210922
  Transmission Date: 20211014
  Serious: Yes (Other)
  Sender: FDA-Public Use
  Company Number: AR-PUMA BIOTECHNOLOGY, INC.-2021-PUM-AR004304

PATIENT

DRUGS (6)
  1. LOPERAMIDE [Concomitant]
     Active Substance: LOPERAMIDE
     Dosage: 1 DF IN THE MORNING, 1 DF IN THE NIGHT
     Dates: start: 20210809
  2. LOPERAMIDE [Concomitant]
     Active Substance: LOPERAMIDE
     Dosage: 1 DF IN THE MORNING AND 2 DF IN THE EVENING
     Dates: start: 20210809, end: 20210809
  3. NERLYNX [Suspect]
     Active Substance: NERATINIB
     Indication: BREAST CANCER METASTATIC
     Dosage: 240 MG, DAILY
     Route: 048
     Dates: start: 20210804
  4. LOPERAMIDE [Concomitant]
     Active Substance: LOPERAMIDE
     Indication: PRODUCT USED FOR UNKNOWN INDICATION
     Dosage: 1 DF
     Dates: start: 20210804, end: 20210808
  5. LOPERAMIDE [Concomitant]
     Active Substance: LOPERAMIDE
     Dosage: 1 DF IN THE MORNING AND AFTERWARDS AS NECESSARY
     Dates: start: 2021
  6. CAPECITABINE. [Concomitant]
     Active Substance: CAPECITABINE
     Indication: PRODUCT USED FOR UNKNOWN INDICATION
     Dosage: 4 DF
     Dates: start: 20210810

REACTIONS (7)
  - Thrombocytopenia [Unknown]
  - Oropharyngeal pain [Unknown]
  - Constipation [Unknown]
  - Inflammation [Unknown]
  - Abdominal discomfort [Unknown]
  - Diarrhoea [Unknown]
  - Abdominal distension [Unknown]

NARRATIVE: CASE EVENT DATE: 2021
